FAERS Safety Report 12298865 (Version 1)
Quarter: 2016Q2

REPORT INFORMATION
  Report Type: Spontaneous
  Country: US (occurrence: None)
  Receive Date: 20160422
  Receipt Date: 20160422
  Transmission Date: 20160815
  Serious: No
  Sender: FDA-Public Use
  Company Number: None

PATIENT
  Age: 4 Year
  Sex: Female
  Weight: 13.61 kg

DRUGS (2)
  1. MONTELUKAST SODIUM, 4 MG [Suspect]
     Active Substance: MONTELUKAST SODIUM
     Indication: MULTIPLE ALLERGIES
     Route: 048
  2. SINGULAIR [Concomitant]
     Active Substance: MONTELUKAST SODIUM

REACTIONS (11)
  - Sleep disorder [None]
  - Disturbance in attention [None]
  - Ear pain [None]
  - Agitation [None]
  - Nightmare [None]
  - Urinary incontinence [None]
  - Depression [None]
  - Cough [None]
  - Mood altered [None]
  - Nasal congestion [None]
  - Tremor [None]

NARRATIVE: CASE EVENT DATE: 20141101
